FAERS Safety Report 4336906-1 (Version None)
Quarter: 2004Q2

REPORT INFORMATION
  Report Type: 
  Country: None (occurrence: None)
  Receive Date: 20040412
  Receipt Date: 20040123
  Transmission Date: 20050107
  Serious: Yes (Hospitalization, Other)
  Sender: FDA-Public Use
  Company Number: US-MERCK-0401USA01980

PATIENT
  Age: 73 Year
  Sex: Male
  Weight: 109 kg

DRUGS (6)
  1. ASPIRIN [Concomitant]
     Route: 065
  2. ATENOLOL [Concomitant]
     Route: 065
  3. TUMS [Concomitant]
     Route: 065
  4. ADALAT [Concomitant]
     Route: 048
  5. PRILOSEC [Concomitant]
     Route: 065
  6. VIOXX [Suspect]
     Indication: OSTEOARTHRITIS
     Route: 048
     Dates: start: 20000801, end: 20000901

REACTIONS (20)
  - BARRETT'S OESOPHAGUS [None]
  - CARDIAC FAILURE CONGESTIVE [None]
  - CHOLELITHIASIS [None]
  - COLON ADENOMA [None]
  - COLONIC POLYP [None]
  - DEHYDRATION [None]
  - DEPRESSION [None]
  - DIABETES MELLITUS [None]
  - DIVERTICULUM [None]
  - DIVERTICULUM INTESTINAL [None]
  - HAEMORRHOIDS [None]
  - HEPATIC STEATOSIS [None]
  - HIATUS HERNIA [None]
  - HYPERTHYROIDISM [None]
  - LIPIDS ABNORMAL [None]
  - MYOCARDIAL INFARCTION [None]
  - OEDEMA PERIPHERAL [None]
  - OESOPHAGEAL ULCER [None]
  - PROSTATE CANCER [None]
  - UPPER GASTROINTESTINAL HAEMORRHAGE [None]
